FAERS Safety Report 12598885 (Version 9)
Quarter: 2019Q3

REPORT INFORMATION
  Report Type: Report from Study
  Country: CN (occurrence: CN)
  Receive Date: 20160726
  Receipt Date: 20190802
  Transmission Date: 20191004
  Serious: Yes (Hospitalization)
  Sender: FDA-Public Use
  Company Number: CN-ASTRAZENECA-2016SE79723

PATIENT
  Age: 21975 Day
  Sex: Female
  Weight: 51 kg

DRUGS (1)
  1. TAGRISSO [Suspect]
     Active Substance: OSIMERTINIB
     Indication: NON-SMALL CELL LUNG CANCER
     Route: 048
     Dates: start: 20160527, end: 20160612

REACTIONS (1)
  - Hepatitis C [Recovered/Resolved]

NARRATIVE: CASE EVENT DATE: 20160603
